FAERS Safety Report 9511085 (Version 2)
Quarter: 2014Q1

REPORT INFORMATION
  Report Type: Spontaneous
  Country: US (occurrence: None)
  Receive Date: 20130905
  Receipt Date: 20140123
  Transmission Date: 20141002
  Serious: Yes (Hospitalization)
  Sender: FDA-Public Use
  Company Number: 201308000253

PATIENT
  Age: 68 Year
  Sex: Female
  Weight: 109.8 kg

DRUGS (8)
  1. NITRIC OXIDE [Suspect]
     Indication: PULMONARY ARTERIAL HYPERTENSION
     Dosage: UNK, INHALATION
     Route: 055
     Dates: start: 20130626, end: 20130814
  2. OXYGEN (OXYGEN) [Concomitant]
  3. ASPIRIN (ACETYLSALICYLIC ACID) [Concomitant]
  4. VENTAVIS (ILOPROST TROMETAMOL) [Concomitant]
  5. ETHACRYNIC ACID (ETACRYNIC ACID) [Concomitant]
  6. ATENOLOL (ATENOLOL) [Concomitant]
  7. NIFEDIPINE (NIFEDIPINE) (NIFEDIPINE) [Concomitant]
  8. VYTORIN (EZETIMIBE, SIMVASTIN) [Concomitant]

REACTIONS (3)
  - Bronchitis [None]
  - Acute respiratory failure [None]
  - Bronchospasm [None]
